FAERS Safety Report 8737249 (Version 5)
Quarter: 2015Q4

REPORT INFORMATION
  Report Type: Spontaneous
  Country: US (occurrence: US)
  Receive Date: 20120822
  Receipt Date: 20151223
  Transmission Date: 20160305
  Serious: Yes (Other)
  Sender: FDA-Public Use
  Company Number: US-ASTRAZENECA-2010SE61439

PATIENT
  Age: 855 Month
  Sex: Female

DRUGS (7)
  1. SYMBICORT [Suspect]
     Active Substance: BUDESONIDE\FORMOTEROL FUMARATE DIHYDRATE
     Indication: CHRONIC OBSTRUCTIVE PULMONARY DISEASE
     Dosage: 80/4.5 MCG 1 PUFF TWO TIMES A DAY
     Route: 055
  2. NEXIUM [Suspect]
     Active Substance: ESOMEPRAZOLE MAGNESIUM
     Indication: GASTROOESOPHAGEAL REFLUX DISEASE
     Route: 048
     Dates: start: 2005
  3. CRESTOR [Suspect]
     Active Substance: ROSUVASTATIN CALCIUM
     Route: 048
     Dates: start: 2010
  4. OXYCODONE [Concomitant]
     Active Substance: OXYCODONE
     Indication: PAIN
  5. SYMBICORT [Suspect]
     Active Substance: BUDESONIDE\FORMOTEROL FUMARATE DIHYDRATE
     Indication: ASTHMA
     Dosage: 80/4.5 MCG 1 PUFF TWO TIMES A DAY
     Route: 055
  6. EFFEXOR [Concomitant]
     Active Substance: VENLAFAXINE HYDROCHLORIDE
     Dosage: GENERIC
  7. HYDRALAZINE [Concomitant]
     Active Substance: HYDRALAZINE HYDROCHLORIDE
     Indication: BLOOD PRESSURE ABNORMAL
     Dosage: DAILY

REACTIONS (13)
  - Renal failure [Unknown]
  - Drug dose omission [Not Recovered/Not Resolved]
  - Fall [Recovered/Resolved]
  - Rash pruritic [Unknown]
  - Dermatitis bullous [Unknown]
  - Cerebrovascular accident [Unknown]
  - Dyspnoea [Unknown]
  - Hypoaesthesia [Not Recovered/Not Resolved]
  - Pain [Unknown]
  - Stress [Unknown]
  - Memory impairment [Unknown]
  - Hypertension [Unknown]
  - Depression [Unknown]

NARRATIVE: CASE EVENT DATE: 201405
